FAERS Safety Report 20797219 (Version 1)
Quarter: 2022Q2

REPORT INFORMATION
  Report Type: Spontaneous
  Country: US (occurrence: US)
  Receive Date: 20220506
  Receipt Date: 20220506
  Transmission Date: 20220720
  Serious: No
  Sender: FDA-Public Use
  Company Number: US-Blueprint Medicines Corporation-SP-US-2022-001261

PATIENT
  Sex: Male

DRUGS (1)
  1. AYVAKIT [Suspect]
     Active Substance: AVAPRITINIB
     Indication: Systemic mastocytosis
     Route: 048
     Dates: start: 20210209

REACTIONS (9)
  - Rash macular [Unknown]
  - Pain [Unknown]
  - Feeling abnormal [Unknown]
  - Condition aggravated [Unknown]
  - Gait disturbance [Unknown]
  - Drug ineffective [Unknown]
  - Pruritus [Unknown]
  - Memory impairment [Unknown]
  - Anxiety [Unknown]
